FAERS Safety Report 6424081-9 (Version None)
Quarter: 2009Q4

REPORT INFORMATION
  Report Type: 
  Country: None (occurrence: None)
  Receive Date: 20091102
  Receipt Date: 20091020
  Transmission Date: 20100525
  Serious: Yes (Other)
  Sender: FDA-Public Use
  Company Number: PHEH2008US09977

PATIENT
  Sex: Male

DRUGS (20)
  1. ZOMETA [Suspect]
     Dosage: 4 MG/100 ML
  2. VIADUR [Concomitant]
  3. FLONASE [Concomitant]
  4. LIPITOR [Concomitant]
  5. ZETIA [Concomitant]
  6. PREDNISONE [Concomitant]
  7. CALCIUM [Concomitant]
     Dosage: 500 MG/DAY
  8. VITAMIN D [Concomitant]
  9. MULTIVITAMIN ^LAPPE^ [Concomitant]
  10. CHEMOTHERAPEUTICS NOS [Concomitant]
  11. HORMONES NOS [Concomitant]
  12. TAXOTERE [Concomitant]
     Dosage: 75 MG/KG
     Dates: start: 20070601
  13. DASATINIB [Concomitant]
     Dosage: 100 MG/DAY
  14. LIDOCAINE W/EPINEPHRINE ^EGYT^ [Concomitant]
  15. OXYGEN THERAPY [Concomitant]
  16. RADIATION THERAPY [Concomitant]
     Dosage: 200 CGY/DAY FOR 6 FRACTIONS
     Dates: start: 20090616, end: 20090624
  17. ZOLADEX [Concomitant]
     Dosage: UNK
     Dates: start: 19970801
  18. KETOCONAZOLE [Concomitant]
  19. DEXAMETHASONE [Concomitant]
  20. CASODEX [Concomitant]

REACTIONS (37)
  - ABDOMINAL MASS [None]
  - ABNORMAL LOSS OF WEIGHT [None]
  - ANXIETY [None]
  - ARTHRALGIA [None]
  - ATELECTASIS [None]
  - BONE DENSITY DECREASED [None]
  - BONE DISORDER [None]
  - BONE PAIN [None]
  - CATARACT [None]
  - DECREASED INTEREST [None]
  - DENTAL CARIES [None]
  - DENTAL OPERATION [None]
  - DISEASE PROGRESSION [None]
  - DIVERTICULUM [None]
  - GENERAL PHYSICAL HEALTH DETERIORATION [None]
  - GINGIVAL RECESSION [None]
  - HYDRONEPHROSIS [None]
  - ILIAC ARTERY STENOSIS [None]
  - INTRAOCULAR LENS IMPLANT [None]
  - MEDICAL DEVICE IMPLANTATION [None]
  - METASTATIC NEOPLASM [None]
  - MYALGIA [None]
  - ORAL PAIN [None]
  - OSTEOMYELITIS [None]
  - OSTEONECROSIS [None]
  - PAIN [None]
  - PERIODONTITIS [None]
  - PLEURAL EFFUSION [None]
  - PROSTATE CANCER [None]
  - PULMONARY FIBROSIS [None]
  - RENAL FAILURE CHRONIC [None]
  - RENAL MASS [None]
  - RETROPERITONEAL LYMPHADENOPATHY [None]
  - SPINAL OSTEOARTHRITIS [None]
  - STENT PLACEMENT [None]
  - STOMATITIS [None]
  - SWELLING [None]
